FAERS Safety Report 5721633-6 (Version None)
Quarter: 2008Q2

REPORT INFORMATION
  Report Type: 
  Country: None (occurrence: None)
  Receive Date: 20080429
  Receipt Date: 20070228
  Transmission Date: 20081010
  Serious: No
  Sender: FDA-Public Use
  Company Number: US-ASTRAZENECA-2007UW03877

PATIENT
  Age: 58 Year
  Sex: Female
  Weight: 71.7 kg

DRUGS (4)
  1. NEXIUM [Suspect]
     Indication: GASTROOESOPHAGEAL REFLUX DISEASE
     Route: 048
  2. PRAVACHOL [Concomitant]
  3. FOSAMAX [Concomitant]
  4. MILD BLOOD PRESSURE MEDICATION [Concomitant]
     Indication: HOT FLUSH

REACTIONS (2)
  - ERUCTATION [None]
  - ILL-DEFINED DISORDER [None]
